FAERS Safety Report 5006186-2 (Version None)
Quarter: 2006Q1

REPORT INFORMATION
  Report Type: 
  Country: None (occurrence: None)
  Receive Date: 20060327
  Receipt Date: 20060126
  Transmission Date: 20060701
  Serious: No
  Sender: FDA-Public Use
  Company Number: 221521

PATIENT
  Sex: 0

DRUGS (4)
  1. AVASTIN [Suspect]
     Indication: COLORECTAL CANCER
     Dosage: 5 MG/KG
  2. FLUOROURACIL [Concomitant]
  3. LEUCOVORIN (LEUCOVORIN CALSIUM) [Concomitant]
  4. OXALIPATIN (OXALIOATIN [Concomitant]

REACTIONS (1)
  - DISEASE PROGRESSION [None]
